FAERS Safety Report 6578358-7 (Version None)
Quarter: 2010Q1

REPORT INFORMATION
  Report Type: 
  Country: None (occurrence: None)
  Receive Date: 20100211
  Receipt Date: 20090417
  Transmission Date: 20100710
  Serious: No
  Sender: FDA-Public Use
  Company Number: US-TYCO HEALTHCARE/MALLINCKRODT-T200900918

PATIENT
  Age: 26 Year
  Sex: Female

DRUGS (1)
  1. CONRAY [Suspect]
     Indication: CHOLECYSTECTOMY
     Dosage: 10 ML (CC), SINGLE
     Route: 042
     Dates: start: 20090410, end: 20090410

REACTIONS (3)
  - DRUG ADMINISTRATION ERROR [None]
  - INJECTION SITE EXTRAVASATION [None]
  - WRONG DRUG ADMINISTERED [None]
